FAERS Safety Report 13624861 (Version 1)
Quarter: 2017Q2

REPORT INFORMATION
  Report Type: Spontaneous
  Country: US (occurrence: US)
  Receive Date: 20170607
  Receipt Date: 20170607
  Transmission Date: 20170830
  Serious: No
  Sender: FDA-Public Use
  Company Number: US-JNJFOC-20170514509

PATIENT
  Age: 8 Year
  Sex: Male
  Weight: 23 kg

DRUGS (1)
  1. RISPERDAL [Suspect]
     Active Substance: RISPERIDONE
     Indication: AUTISM SPECTRUM DISORDER
     Dosage: 1MG MORNING, 1MG NOON, 1 MG BEFORE SLEEPING
     Route: 048

REACTIONS (5)
  - Inappropriate schedule of drug administration [Unknown]
  - Aggression [Not Recovered/Not Resolved]
  - Off label use [Unknown]
  - Psychomotor hyperactivity [Not Recovered/Not Resolved]
  - Incorrect dose administered [Unknown]
